FAERS Safety Report 9265576 (Version 2)
Quarter: 2013Q2

REPORT INFORMATION
  Report Type: Spontaneous
  Country: IN (occurrence: IN)
  Receive Date: 20130501
  Receipt Date: 20130509
  Transmission Date: 20140414
  Serious: Yes (Death)
  Sender: FDA-Public Use
  Company Number: IN-BRISTOL-MYERS SQUIBB COMPANY-18828780

PATIENT
  Age: 67 Year
  Sex: Female

DRUGS (1)
  1. BARACLUDE TABS 0.5 MG [Suspect]
     Dosage: BARACLUDE 0.5 MG , DOSAGE 1 TABLET
     Dates: start: 20110514, end: 20130331

REACTIONS (1)
  - Hepatic cirrhosis [Fatal]
